FAERS Safety Report 6628508-9 (Version None)
Quarter: 2010Q1

REPORT INFORMATION
  Report Type: 
  Country: None (occurrence: None)
  Receive Date: 20100225
  Receipt Date: 20091119
  Transmission Date: 20100710
  Serious: Yes (Other)
  Sender: FDA-Public Use
  Company Number: 670075

PATIENT
  Age: 16 Year
  Sex: Female
  Weight: 63.5 kg

DRUGS (1)
  1. ACCUTANE [Suspect]
     Indication: ACNE
     Dosage: 60 MG 2 PER 1 DAY ORAL
     Route: 048
     Dates: start: 20090302, end: 20091002

REACTIONS (1)
  - DEPRESSION [None]
